FAERS Safety Report 23967518 (Version 1)
Quarter: 2024Q2

REPORT INFORMATION
  Report Type: Spontaneous
  Country: US (occurrence: None)
  Receive Date: 20240612
  Receipt Date: 20240612
  Transmission Date: 20240716
  Serious: No
  Sender: FDA-Public Use
  Company Number: None

PATIENT
  Age: 60 Year
  Sex: Female

DRUGS (1)
  1. ENBREL [Suspect]
     Active Substance: BENZYL ALCOHOL\ETANERCEPT
     Indication: Spondyloarthropathy
     Dosage: FREQUENCY : WEEKLY;?
     Route: 058
     Dates: start: 202301

REACTIONS (1)
  - Diabetic ketoacidosis [None]
